FAERS Safety Report 8198703-9 (Version None)
Quarter: 2012Q1

REPORT INFORMATION
  Report Type: 
  Country: None (occurrence: None)
  Receive Date: 20120309
  Receipt Date: 20120131
  Transmission Date: 20120608
  Serious: No
  Sender: FDA-Public Use
  Company Number: US-AMGEN-USASP2012006466

PATIENT
  Age: 86 Year
  Sex: Female

DRUGS (18)
  1. PLAVIX [Concomitant]
     Dosage: UNK
  2. AMLODIPINE [Concomitant]
     Dosage: UNK
  3. OXYBUTYNIN [Concomitant]
     Dosage: UNK
  4. METOPROLOL SUCCINATE [Concomitant]
     Dosage: UNK
  5. ASPIRIN [Concomitant]
     Dosage: UNK
  6. VITAMIN B-12 [Concomitant]
     Dosage: UNK
  7. VITAMIN D [Concomitant]
     Dosage: UNK
  8. SYNTHROID [Concomitant]
     Dosage: UNK
     Dates: start: 20110801, end: 20120119
  9. ISOSORBIDE DINITRATE [Concomitant]
     Dosage: UNK
  10. CALTRATE + D [Concomitant]
     Dosage: UNK
  11. ESTROPIPATE [Concomitant]
     Dosage: UNK
  12. CRANBERRY [Concomitant]
     Dosage: UNK
  13. WELCHOL [Concomitant]
     Dosage: UNK
  14. PROLIA [Suspect]
     Indication: OSTEOPOROSIS POSTMENOPAUSAL
     Dosage: 60 MG, Q6MO
     Route: 058
     Dates: start: 20110805
  15. SULINDAC [Concomitant]
     Dosage: UNK
  16. LANSOPRAZOLE [Concomitant]
     Dosage: UNK
  17. LASIX [Concomitant]
     Dosage: UNK
  18. VITAMIN B6 [Concomitant]
     Dosage: UNK

REACTIONS (2)
  - PRURITUS GENERALISED [None]
  - SKIN IRRITATION [None]
